FAERS Safety Report 4952173-X (Version None)
Quarter: 2006Q1

REPORT INFORMATION
  Report Type: 
  Country: None (occurrence: None)
  Receive Date: 20060320
  Receipt Date: 20060310
  Transmission Date: 20060701
  Serious: No
  Sender: FDA-Public Use
  Company Number: 06H-066-0306256-00

PATIENT

DRUGS (3)
  1. ETOPOSIDE [Suspect]
     Indication: SMALL CELL LUNG CANCER EXTENSIVE STAGE
     Dosage: 100 MG/M2, INTRAVENOUS
     Route: 042
  2. CISPLATIN [Suspect]
     Indication: SMALL CELL LUNG CANCER EXTENSIVE STAGE
     Dosage: 75 MG/M2, INTRAVENOUS
     Route: 042
  3. SODIUM CHLORIDE [Concomitant]

REACTIONS (2)
  - DRUG TOXICITY [None]
  - RESPIRATORY TRACT INFECTION [None]
